FAERS Safety Report 16327584 (Version 3)
Quarter: 2020Q2

REPORT INFORMATION
  Report Type: Spontaneous
  Country: US (occurrence: US)
  Receive Date: 20190517
  Receipt Date: 20200408
  Transmission Date: 20200713
  Serious: Yes (Other)
  Sender: FDA-Public Use
  Company Number: US-GILEAD-2019-0408505

PATIENT
  Sex: Female

DRUGS (70)
  1. CYCLOBENZAPRINE. [Concomitant]
     Active Substance: CYCLOBENZAPRINE
  2. COMPLERA [Suspect]
     Active Substance: EMTRICITABINE\RILPIVIRINE HYDROCHLORIDE\TENOFOVIR DISOPROXIL FUMARATE
     Indication: HIV INFECTION
     Dosage: UNK
     Route: 048
     Dates: start: 201108, end: 201812
  3. MOXIFLOXACIN. [Concomitant]
     Active Substance: MOXIFLOXACIN
  4. PROAIR HFA [Concomitant]
     Active Substance: ALBUTEROL SULFATE
  5. FLUTICASONE. [Concomitant]
     Active Substance: FLUTICASONE
  6. ESOMEPRAZOLE MAGNESIUM. [Concomitant]
     Active Substance: ESOMEPRAZOLE MAGNESIUM
  7. OFLOXACIN. [Concomitant]
     Active Substance: OFLOXACIN
  8. OXYCODONE [Concomitant]
     Active Substance: OXYCODONE
  9. PAXIL [Concomitant]
     Active Substance: PAROXETINE HYDROCHLORIDE
  10. LAMICTAL [Concomitant]
     Active Substance: LAMOTRIGINE
  11. VITAMIN D3 [Concomitant]
     Active Substance: CHOLECALCIFEROL
  12. LOXAPINE SUCCINATE. [Concomitant]
     Active Substance: LOXAPINE SUCCINATE
  13. ATRIPLA [Suspect]
     Active Substance: EFAVIRENZ\EMTRICITABINE\TENOFOVIR DISOPROXIL FUMARATE
     Indication: HIV INFECTION
     Dosage: UNK
     Route: 048
     Dates: start: 200607, end: 201108
  14. TRAMADOL. [Concomitant]
     Active Substance: TRAMADOL
  15. MELOXICAM. [Concomitant]
     Active Substance: MELOXICAM
  16. AMITRIPTYLINE [Concomitant]
     Active Substance: AMITRIPTYLINE
  17. LYRICA [Concomitant]
     Active Substance: PREGABALIN
  18. KLONOPIN [Concomitant]
     Active Substance: CLONAZEPAM
  19. MONTELUKAST [Concomitant]
     Active Substance: MONTELUKAST SODIUM
  20. ATORVASTATIN [Concomitant]
     Active Substance: ATORVASTATIN
  21. CHANTIX [Concomitant]
     Active Substance: VARENICLINE TARTRATE
  22. POLYETHYLENE GLYCOL [Concomitant]
     Active Substance: POLYETHYLENE GLYCOLS
  23. TRUVADA [Suspect]
     Active Substance: EMTRICITABINE\TENOFOVIR DISOPROXIL FUMARATE
     Indication: HIV INFECTION
     Dosage: UNK
     Route: 048
     Dates: start: 200408, end: 200607
  24. NEVANAC [Concomitant]
     Active Substance: NEPAFENAC
  25. XARELTO [Concomitant]
     Active Substance: RIVAROXABAN
  26. IBUPROFEN. [Concomitant]
     Active Substance: IBUPROFEN
  27. FAMOTIDINE. [Concomitant]
     Active Substance: FAMOTIDINE
  28. CLARITIN [Concomitant]
     Active Substance: LORATADINE
  29. ISENTRESS [Concomitant]
     Active Substance: RALTEGRAVIR POTASSIUM
  30. ALBUTEROL [SALBUTAMOL] [Concomitant]
     Active Substance: ALBUTEROL
  31. ZYPREXA [Concomitant]
     Active Substance: OLANZAPINE
  32. ASPIRIN 81 [Concomitant]
     Active Substance: ASPIRIN
  33. VISTARIL [HYDROXYZINE HYDROCHLORIDE] [Concomitant]
  34. TRIUMEQ [Concomitant]
     Active Substance: ABACAVIR SULFATE\DOLUTEGRAVIR SODIUM\LAMIVUDINE
  35. ERYTHROMYCIN. [Concomitant]
     Active Substance: ERYTHROMYCIN
  36. MULTIVITAMINS [VITAMINS NOS] [Concomitant]
     Active Substance: VITAMINS
  37. ONDANSETRON [Concomitant]
     Active Substance: ONDANSETRON
  38. VALACYCLOVIR [Concomitant]
     Active Substance: VALACYCLOVIR HYDROCHLORIDE
  39. OXYCODONE AND ACETAMINOPHEN [Concomitant]
     Active Substance: ACETAMINOPHEN\OXYCODONE HYDROCHLORIDE
  40. SEROQUEL XR [Concomitant]
     Active Substance: QUETIAPINE FUMARATE
  41. ABILIFY [Concomitant]
     Active Substance: ARIPIPRAZOLE
  42. ADVAIR HFA [Concomitant]
     Active Substance: FLUTICASONE PROPIONATE\SALMETEROL XINAFOATE
  43. ZITHROMAX [Concomitant]
     Active Substance: AZITHROMYCIN DIHYDRATE
  44. KLOR-CON [Concomitant]
     Active Substance: POTASSIUM CHLORIDE
  45. AMLODIPINE [Concomitant]
     Active Substance: AMLODIPINE BESYLATE
  46. VIREAD [Suspect]
     Active Substance: TENOFOVIR DISOPROXIL FUMARATE
     Indication: HIV INFECTION
     Dosage: UNK
     Route: 048
     Dates: start: 200110, end: 200408
  47. NORVIR [Concomitant]
     Active Substance: RITONAVIR
  48. LITHIUM CARBONATE. [Concomitant]
     Active Substance: LITHIUM CARBONATE
  49. TRIAMCINOLONE ACETONIDE. [Concomitant]
     Active Substance: TRIAMCINOLONE ACETONIDE
  50. TIVICAY [Concomitant]
     Active Substance: DOLUTEGRAVIR SODIUM
  51. MUCINEX [Concomitant]
     Active Substance: GUAIFENESIN
  52. DESCOVY [Concomitant]
     Active Substance: EMTRICITABINE\TENOFOVIR ALAFENAMIDE FUMARATE
     Indication: HIV INFECTION
     Dosage: UNK
     Dates: start: 201710
  53. FELDENE [Concomitant]
     Active Substance: PIROXICAM
  54. HYDROXYZINE PAMOATE. [Concomitant]
     Active Substance: HYDROXYZINE PAMOATE
  55. IMITREX [Concomitant]
     Active Substance: SUMATRIPTAN SUCCINATE
  56. SAPHRIS [Concomitant]
     Active Substance: ASENAPINE MALEATE
  57. PREZISTA [Concomitant]
     Active Substance: DARUNAVIR ETHANOLATE
  58. LAMISIL [Concomitant]
     Active Substance: TERBINAFINE HYDROCHLORIDE
  59. CHLORTHALIDONE. [Concomitant]
     Active Substance: CHLORTHALIDONE
  60. HYDROCHLOROTHIAZIDE. [Concomitant]
     Active Substance: HYDROCHLOROTHIAZIDE
  61. LAMIVUDINE. [Concomitant]
     Active Substance: LAMIVUDINE
  62. RILPIVIRINE [Concomitant]
     Active Substance: RILPIVIRINE
  63. VITAMIN B12 [VITAMIN B12 NOS] [Concomitant]
     Active Substance: CYANOCOBALAMIN
  64. OMEGA 3 ACID ETHYL ESTERS [Concomitant]
     Active Substance: OMEGA-3-ACID ETHYL ESTERS
  65. ALLEGRA-D [FEXOFENADINE;PSEUDOEPHEDRINE HYDROCHLORIDE] [Concomitant]
  66. HARVONI [Concomitant]
     Active Substance: LEDIPASVIR\SOFOSBUVIR
     Indication: CHRONIC HEPATITIS C
     Dosage: UNK
     Dates: start: 20160722, end: 20161019
  67. BENADRYL ITCH [Concomitant]
  68. DIPHENHYDRAMINE. [Concomitant]
     Active Substance: DIPHENHYDRAMINE
  69. PRAVASTATIN. [Concomitant]
     Active Substance: PRAVASTATIN
  70. REYATAZ [Concomitant]
     Active Substance: ATAZANAVIR SULFATE

REACTIONS (9)
  - Bone density decreased [Not Recovered/Not Resolved]
  - Anhedonia [Unknown]
  - Emotional distress [Unknown]
  - Anxiety [Unknown]
  - Osteomalacia [Not Recovered/Not Resolved]
  - Bone loss [Unknown]
  - Economic problem [Unknown]
  - Pain [Unknown]
  - Tooth loss [Unknown]

NARRATIVE: CASE EVENT DATE: 2006
